FAERS Safety Report 20379077 (Version 4)
Quarter: 2022Q2

REPORT INFORMATION
  Report Type: Report from Study
  Country: US (occurrence: US)
  Receive Date: 20220126
  Receipt Date: 20220418
  Transmission Date: 20220721
  Serious: Yes (Hospitalization, Other)
  Sender: FDA-Public Use
  Company Number: US-BoehringerIngelheim-2022-BI-107743

PATIENT
  Age: 66 Year
  Sex: Female
  Weight: 68.5 kg

DRUGS (10)
  1. OFEV [Suspect]
     Active Substance: NINTEDANIB
     Indication: Idiopathic pulmonary fibrosis
     Route: 048
     Dates: start: 20211228
  2. ORENITRAM [Suspect]
     Active Substance: TREPROSTINIL
     Indication: Pulmonary arterial hypertension
     Dosage: FOA: EXTENDED RELEASE TABLET
     Route: 048
  3. ORENITRAM [Suspect]
     Active Substance: TREPROSTINIL
     Dosage: FOA: EXTENDED RELEASE TABLET,
     Route: 048
  4. ORENITRAM [Suspect]
     Active Substance: TREPROSTINIL
     Dosage: FOA: EXTENDED RELEASE TABLET
     Route: 048
  5. ORENITRAM [Suspect]
     Active Substance: TREPROSTINIL
     Dosage: FOA: EXTENDED RELEASE TABLET
     Route: 048
  6. ORENITRAM [Suspect]
     Active Substance: TREPROSTINIL
     Dosage: FOA: EXTENDED RELEASE TABLET
     Route: 048
  7. ORENITRAM [Suspect]
     Active Substance: TREPROSTINIL
     Route: 048
  8. NITROFURANTOIN [Suspect]
     Active Substance: NITROFURANTOIN
     Indication: Urinary tract infection
  9. TADALAFIL [Concomitant]
     Active Substance: TADALAFIL
     Indication: Product used for unknown indication
  10. AMBRISENTAN [Concomitant]
     Active Substance: AMBRISENTAN
     Indication: Product used for unknown indication

REACTIONS (14)
  - Loss of consciousness [Unknown]
  - Gastrointestinal bacterial infection [Unknown]
  - Vomiting [Unknown]
  - Blood potassium decreased [Unknown]
  - Nausea [Unknown]
  - Diarrhoea [Unknown]
  - Urinary tract infection [Unknown]
  - Headache [Unknown]
  - Pain [Unknown]
  - Gastric disorder [Unknown]
  - Hypersensitivity [Unknown]
  - Head discomfort [Unknown]
  - Pain in extremity [Unknown]
  - Nasal congestion [Unknown]

NARRATIVE: CASE EVENT DATE: 20210101
